FAERS Safety Report 13474149 (Version 1)
Quarter: 2017Q2

REPORT INFORMATION
  Report Type: Spontaneous
  Country: US (occurrence: US)
  Receive Date: 20170424
  Receipt Date: 20170424
  Transmission Date: 20170830
  Serious: Yes (Death)
  Sender: FDA-Public Use
  Company Number: US-SA-2016SA194765

PATIENT
  Age: 70 Year
  Sex: Male

DRUGS (1)
  1. LOVENOX [Suspect]
     Active Substance: ENOXAPARIN SODIUM
     Indication: GALLBLADDER OPERATION
     Dosage: TAKEN FROM: 2.5 YEARS AGO
     Route: 065

REACTIONS (1)
  - Haemorrhage [Fatal]
